FAERS Safety Report 7708843-3 (Version None)
Quarter: 2011Q3

REPORT INFORMATION
  Report Type: 
  Country: None (occurrence: None)
  Receive Date: 20110824
  Receipt Date: 20110815
  Transmission Date: 20111222
  Serious: No
  Sender: FDA-Public Use
  Company Number: DL2011-0659

PATIENT
  Age: 27 Year
  Sex: Female

DRUGS (4)
  1. MIFEPRISTONE (MIFEPREX) [Suspect]
     Indication: ABORTION INDUCED
     Dosage: 200 MG, ORAL
     Route: 048
     Dates: start: 20110630
  2. MISOPROSTOL [Suspect]
     Dosage: 800 MCG, BUCCAL 400 MCG EVERY 8 HOURS, 3 TIMES
     Route: 002
     Dates: start: 20110701
  3. MISOPROSTOL [Suspect]
     Dosage: 800 MCG, BUCCAL 400 MCG EVERY 8 HOURS, 3 TIMES
     Route: 002
     Dates: start: 20110716
  4. DOXYCYCLINE [Concomitant]

REACTIONS (10)
  - PELVIC PAIN [None]
  - UTERINE TENDERNESS [None]
  - PYREXIA [None]
  - EMOTIONAL DISTRESS [None]
  - ABORTION INDUCED COMPLETE [None]
  - HEADACHE [None]
  - ORAL CANDIDIASIS [None]
  - RETAINED PRODUCTS OF CONCEPTION [None]
  - DEPRESSION [None]
  - CHILLS [None]
